FAERS Safety Report 6011032-4 (Version None)
Quarter: 2008Q4

REPORT INFORMATION
  Report Type: 
  Country: None (occurrence: None)
  Receive Date: 20081218
  Receipt Date: 20081208
  Transmission Date: 20090506
  Serious: Yes (Hospitalization, Other)
  Sender: FDA-Public Use
  Company Number: JP-PFIZER INC-2008097079

PATIENT

DRUGS (4)
  1. CELECOX [Suspect]
     Indication: OSTEOARTHRITIS
     Dosage: 200 MG, 1X/DAY
     Route: 048
     Dates: start: 20081103, end: 20081113
  2. DIOVAN HCT [Concomitant]
     Dosage: 80 MG, 1X/DAY
     Route: 048
  3. INSULIN [Concomitant]
     Dosage: UNK
  4. ITOROL [Concomitant]
     Dosage: 20 MG, 1X/DAY
     Route: 048

REACTIONS (2)
  - CHEST PAIN [None]
  - FEELING ABNORMAL [None]
